FAERS Safety Report 10359224 (Version 1)
Quarter: 2014Q3

REPORT INFORMATION
  Report Type: Spontaneous
  Country: US (occurrence: US)
  Receive Date: 20140804
  Receipt Date: 20140804
  Transmission Date: 20150326
  Serious: No
  Sender: FDA-Public Use
  Company Number: US-AMGEN INC.-USASP2014057251

PATIENT
  Sex: Female

DRUGS (13)
  1. CELEXA                             /01400501/ [Concomitant]
     Dosage: UNK
  2. HYDROCODONE                        /00060002/ [Concomitant]
     Active Substance: HYDROCODONE
     Dosage: 7.5 325
  3. SIMVASTATIN. [Concomitant]
     Active Substance: SIMVASTATIN
     Dosage: 10 MG, UNK
  4. ENBREL [Suspect]
     Active Substance: ETANERCEPT
     Indication: PSORIATIC ARTHROPATHY
  5. CLOBETASOL PROPIONATE. [Concomitant]
     Active Substance: CLOBETASOL PROPIONATE
     Dosage: 0.5 %, UNK
  6. HYDROCORTISONE. [Concomitant]
     Active Substance: HYDROCORTISONE
     Dosage: 2.5 %, UNK
  7. LOTENSIN [Concomitant]
     Active Substance: BENAZEPRIL HYDROCHLORIDE
     Dosage: UNK
  8. CHLORZOXAZONE. [Concomitant]
     Active Substance: CHLORZOXAZONE
     Dosage: 500 MG, UNK
  9. XANAX [Concomitant]
     Active Substance: ALPRAZOLAM
     Dosage: 1 MG, UNK
  10. FLEXERIL                           /00821801/ [Concomitant]
     Dosage: 10 MG,AT BEDTIME
  11. ENBREL [Suspect]
     Active Substance: ETANERCEPT
     Indication: PSORIASIS
     Dosage: 50 MG, 2 TIMES/WK
     Route: 065
     Dates: start: 201405, end: 201407
  12. OSTEO BI-FLEX                      /01431201/ [Concomitant]
     Dosage: UNK
  13. CETAPHIL                           /00498501/ [Concomitant]
     Indication: DRY SKIN
     Dosage: UNK

REACTIONS (2)
  - Myalgia [Recovered/Resolved]
  - Bone pain [Unknown]

NARRATIVE: CASE EVENT DATE: 2014
